FAERS Safety Report 18594384 (Version 15)
Quarter: 2022Q4

REPORT INFORMATION
  Report Type: Spontaneous
  Country: CZ (occurrence: CZ)
  Receive Date: 20201209
  Receipt Date: 20221005
  Transmission Date: 20230113
  Serious: Yes (Hospitalization, Disabling, Other)
  Sender: FDA-Public Use
  Company Number: None

PATIENT
  Age: 96 Year
  Sex: Female

DRUGS (152)
  1. ROSUVASTATIN [Suspect]
     Active Substance: ROSUVASTATIN
     Indication: Product used for unknown indication
     Dosage: UNK
     Route: 065
  2. ROSUVASTATIN [Suspect]
     Active Substance: ROSUVASTATIN
     Dosage: UNK
     Route: 065
  3. ROSUVASTATIN [Suspect]
     Active Substance: ROSUVASTATIN
     Dosage: UNK
     Route: 065
  4. ROSUVASTATIN [Suspect]
     Active Substance: ROSUVASTATIN
     Dosage: UNK
     Route: 065
  5. ROSUVASTATIN [Suspect]
     Active Substance: ROSUVASTATIN
     Dosage: UNK
     Route: 065
  6. ROSUVASTATIN [Suspect]
     Active Substance: ROSUVASTATIN
     Dosage: UNK
     Route: 065
  7. SODIUM PICOSULFATE [Interacting]
     Active Substance: SODIUM PICOSULFATE
     Indication: Constipation
     Dosage: 1 DOSAGE FORM (1DF=10-20 GUTTES)
     Route: 065
  8. SODIUM PICOSULFATE [Interacting]
     Active Substance: SODIUM PICOSULFATE
     Dosage: UNK
     Route: 065
  9. SODIUM PICOSULFATE [Interacting]
     Active Substance: SODIUM PICOSULFATE
     Dosage: 10-20 GUTTES
     Route: 065
  10. SODIUM PICOSULFATE [Interacting]
     Active Substance: SODIUM PICOSULFATE
     Dosage: 1 DOSAGE FORM
     Route: 065
  11. SODIUM PICOSULFATE [Interacting]
     Active Substance: SODIUM PICOSULFATE
     Dosage: 10-20 GTT, EVERY EVENING
     Route: 065
  12. ACETAMINOPHEN [Interacting]
     Active Substance: ACETAMINOPHEN
     Indication: Pain
     Dosage: TABLET, 1.5 DF (3-4 TIMES PER DAY)
     Route: 065
  13. ACETAMINOPHEN [Interacting]
     Active Substance: ACETAMINOPHEN
     Dosage: 500 MG (1.5 TAB, 3-4 TIMES PER DAY)
     Route: 048
  14. ACETAMINOPHEN [Interacting]
     Active Substance: ACETAMINOPHEN
     Dosage: UNK
     Route: 065
  15. ROSUVASTATIN CALCIUM [Interacting]
     Active Substance: ROSUVASTATIN CALCIUM
     Indication: Product used for unknown indication
     Dosage: 20 MILLIGRAM, QD
     Route: 048
  16. ROSUVASTATIN CALCIUM [Interacting]
     Active Substance: ROSUVASTATIN CALCIUM
     Dosage: UNK
     Route: 065
  17. ACETAMINOPHEN [Suspect]
     Active Substance: ACETAMINOPHEN
     Indication: Pain
     Dosage: UNK
     Route: 065
  18. SODIUM PICOSULFATE [Suspect]
     Active Substance: SODIUM PICOSULFATE
     Indication: Product used for unknown indication
     Dosage: UNK
     Route: 065
  19. TRAMADOL [Interacting]
     Active Substance: TRAMADOL
     Indication: Product used for unknown indication
     Dosage: UNK
     Route: 065
  20. TRAMADOL [Interacting]
     Active Substance: TRAMADOL
     Dosage: OVERUSED
     Route: 048
  21. METHOTREXATE [Interacting]
     Active Substance: METHOTREXATE
     Indication: Rheumatoid arthritis
     Dosage: 10 MILLIGRAM, QW
     Route: 065
     Dates: start: 2010
  22. METHOTREXATE [Interacting]
     Active Substance: METHOTREXATE
     Dosage: 10 MILLIGRAM, QD (SUNDAY)
     Route: 048
  23. METHOTREXATE [Interacting]
     Active Substance: METHOTREXATE
     Dosage: UNK
     Route: 065
  24. MELOXICAM [Suspect]
     Active Substance: MELOXICAM
     Indication: Product used for unknown indication
     Dosage: 15 MILLIGRAM
     Route: 065
  25. MELOXICAM [Suspect]
     Active Substance: MELOXICAM
     Indication: Product used for unknown indication
     Dosage: UNK
     Route: 065
  26. MELOXICAM [Suspect]
     Active Substance: MELOXICAM
     Dosage: UNK
     Route: 065
  27. MELOXICAM [Suspect]
     Active Substance: MELOXICAM
     Dosage: UNK
     Route: 065
  28. MELOXICAM [Suspect]
     Active Substance: MELOXICAM
     Dosage: UNK
     Route: 065
  29. MELOXICAM [Suspect]
     Active Substance: MELOXICAM
     Dosage: UNK
     Route: 065
  30. DONEPEZIL [Suspect]
     Active Substance: DONEPEZIL
     Indication: Product used for unknown indication
     Dosage: UNK
     Route: 065
  31. OMEPRAZOLE [Suspect]
     Active Substance: OMEPRAZOLE
     Indication: Product used for unknown indication
     Dosage: UNK
     Route: 065
  32. OMEPRAZOLE [Suspect]
     Active Substance: OMEPRAZOLE
     Dosage: UNK
     Route: 065
  33. OMEPRAZOLE [Suspect]
     Active Substance: OMEPRAZOLE
     Dosage: UNK
     Route: 065
  34. OMEPRAZOLE [Suspect]
     Active Substance: OMEPRAZOLE
     Dosage: UNK
     Route: 065
  35. OMEPRAZOLE [Suspect]
     Active Substance: OMEPRAZOLE
     Dosage: UNK
     Route: 065
  36. OMEPRAZOLE [Suspect]
     Active Substance: OMEPRAZOLE
     Dosage: UNK
     Route: 065
  37. PREGABALIN [Suspect]
     Active Substance: PREGABALIN
     Indication: Post herpetic neuralgia
     Dosage: UNK
     Route: 065
  38. PREGABALIN [Suspect]
     Active Substance: PREGABALIN
     Indication: Product used for unknown indication
     Dosage: UNK
     Route: 065
  39. PREGABALIN [Suspect]
     Active Substance: PREGABALIN
     Indication: Product used for unknown indication
     Dosage: UNK
     Route: 065
  40. PREGABALIN [Suspect]
     Active Substance: PREGABALIN
     Dosage: UNK
     Route: 065
  41. PREGABALIN [Suspect]
     Active Substance: PREGABALIN
     Dosage: UNK
     Route: 065
  42. PREGABALIN [Suspect]
     Active Substance: PREGABALIN
     Dosage: UNK
     Route: 065
  43. PREGABALIN [Suspect]
     Active Substance: PREGABALIN
     Dosage: UNK
     Route: 065
  44. AMLODIPINE [Suspect]
     Active Substance: AMLODIPINE BESYLATE
     Indication: Product used for unknown indication
     Dosage: UNK
     Route: 065
  45. FENTANYL [Suspect]
     Active Substance: FENTANYL
     Indication: Product used for unknown indication
     Dosage: UNK
     Route: 065
  46. FENTANYL [Suspect]
     Active Substance: FENTANYL
     Dosage: UNK
     Route: 065
  47. FENTANYL [Suspect]
     Active Substance: FENTANYL
     Dosage: UNK
     Route: 065
  48. FENTANYL [Suspect]
     Active Substance: FENTANYL
     Dosage: UNK
     Route: 065
  49. FENTANYL [Suspect]
     Active Substance: FENTANYL
     Dosage: UNK
     Route: 065
  50. METOPROLOL [Interacting]
     Active Substance: METOPROLOL
     Indication: Product used for unknown indication
     Dosage: UNK
     Route: 065
  51. METOPROLOL [Interacting]
     Active Substance: METOPROLOL
     Dosage: UNK
     Route: 065
  52. METOPROLOL [Interacting]
     Active Substance: METOPROLOL
     Dosage: UNK
     Route: 065
  53. METOPROLOL [Interacting]
     Active Substance: METOPROLOL
     Dosage: UNK
     Route: 065
  54. METOPROLOL [Interacting]
     Active Substance: METOPROLOL
     Dosage: UNK
     Route: 065
  55. METOPROLOL [Interacting]
     Active Substance: METOPROLOL
     Dosage: UNK
     Route: 065
  56. METOPROLOL [Interacting]
     Active Substance: METOPROLOL
     Dosage: UNK
     Route: 065
  57. METOPROLOL [Interacting]
     Active Substance: METOPROLOL
     Dosage: UNK
     Route: 065
  58. METOPROLOL [Interacting]
     Active Substance: METOPROLOL
     Dosage: UNK
     Route: 065
  59. TELMISARTAN [Suspect]
     Active Substance: TELMISARTAN
     Indication: Product used for unknown indication
     Dosage: UNK
     Route: 065
  60. TELMISARTAN [Suspect]
     Active Substance: TELMISARTAN
     Dosage: UNK
     Route: 065
  61. TELMISARTAN [Suspect]
     Active Substance: TELMISARTAN
     Dosage: UNK
     Route: 065
  62. TELMISARTAN [Suspect]
     Active Substance: TELMISARTAN
     Dosage: UNK
     Route: 065
  63. TELMISARTAN [Suspect]
     Active Substance: TELMISARTAN
     Dosage: UNK
     Route: 065
  64. AMIODARONE [Suspect]
     Active Substance: AMIODARONE
     Indication: Product used for unknown indication
     Dosage: UNK
     Route: 065
  65. AMIODARONE [Suspect]
     Active Substance: AMIODARONE
     Dosage: UNK
     Route: 065
  66. AMIODARONE [Suspect]
     Active Substance: AMIODARONE
     Dosage: UNK
     Route: 065
  67. AMIODARONE [Suspect]
     Active Substance: AMIODARONE
     Dosage: UNK
     Route: 065
  68. AMIODARONE [Suspect]
     Active Substance: AMIODARONE
     Dosage: UNK
     Route: 065
  69. AMIODARONE [Suspect]
     Active Substance: AMIODARONE
     Dosage: UNK
     Route: 065
  70. AMIODARONE [Suspect]
     Active Substance: AMIODARONE
     Dosage: UNK
     Route: 065
  71. PANTOPRAZOLE [Suspect]
     Active Substance: PANTOPRAZOLE
     Indication: Product used for unknown indication
     Dosage: UNK
     Route: 065
  72. PANTOPRAZOLE [Suspect]
     Active Substance: PANTOPRAZOLE
     Dosage: UNK
     Route: 065
  73. PANTOPRAZOLE [Suspect]
     Active Substance: PANTOPRAZOLE
     Dosage: UNK
     Route: 065
  74. PANTOPRAZOLE [Suspect]
     Active Substance: PANTOPRAZOLE
     Dosage: UNK
     Route: 065
  75. PANTOPRAZOLE [Suspect]
     Active Substance: PANTOPRAZOLE
     Dosage: UNK
     Route: 065
  76. PANTOPRAZOLE [Suspect]
     Active Substance: PANTOPRAZOLE
     Dosage: UNK
     Route: 065
  77. CONTROLOC [Interacting]
     Active Substance: PANTOPRAZOLE SODIUM
     Indication: Nausea
     Dosage: GASTRO-RESISTANT TABLET, 20 MILLIGRAM, QD
     Route: 048
  78. CONTROLOC [Interacting]
     Active Substance: PANTOPRAZOLE SODIUM
     Dosage: UNK
     Route: 065
  79. FENTANYL [Interacting]
     Active Substance: FENTANYL
     Indication: Post herpetic neuralgia
     Dosage: 25 MICROGRAM,Q72H
     Route: 062
     Dates: start: 2015
  80. FENTANYL [Interacting]
     Active Substance: FENTANYL
     Indication: Pain
     Dosage: 25 UG/H EVERY 72 HOURS
     Route: 062
     Dates: start: 2015
  81. FENTANYL [Interacting]
     Active Substance: FENTANYL
     Dosage: UNK
     Route: 065
  82. MAGNESIUM ASPARTATE\POTASSIUM ASPARTATE [Interacting]
     Active Substance: MAGNESIUM ASPARTATE\POTASSIUM ASPARTATE
     Indication: Product used for unknown indication
     Dosage: UNK, QD
     Route: 065
  83. MAGNESIUM ASPARTATE\POTASSIUM ASPARTATE [Interacting]
     Active Substance: MAGNESIUM ASPARTATE\POTASSIUM ASPARTATE
     Dosage: UNK
     Route: 065
  84. EUTHYROX [Interacting]
     Active Substance: LEVOTHYROXINE SODIUM
     Indication: Autoimmune thyroiditis
     Dosage: 100 MICROGRAM, QD
     Route: 065
  85. EUTHYROX [Interacting]
     Active Substance: LEVOTHYROXINE SODIUM
     Indication: Hypothyroidism
     Dosage: 100 MICROGRAM, QD
     Route: 065
  86. EUTHYROX [Interacting]
     Active Substance: LEVOTHYROXINE SODIUM
     Dosage: DOSE REDUCED
     Route: 065
  87. METOPROLOL [Suspect]
     Active Substance: METOPROLOL
     Indication: Product used for unknown indication
     Dosage: 25 MILLIGRAM, QD
     Route: 048
  88. METOPROLOL [Suspect]
     Active Substance: METOPROLOL
     Dosage: UNK
     Route: 065
  89. TELMISARTAN [Interacting]
     Active Substance: TELMISARTAN
     Indication: Hypertension
     Dosage: 80/12.5 MG
     Route: 048
  90. TELMISARTAN [Interacting]
     Active Substance: TELMISARTAN
     Dosage: 1 DOSAGE FORM (1DF=80/12.5 MG)
     Route: 065
  91. TELMISARTAN [Interacting]
     Active Substance: TELMISARTAN
     Dosage: 1 DOSAGE FORM, QD (1DF=80/12.5 MG)
     Route: 065
  92. TELMISARTAN [Interacting]
     Active Substance: TELMISARTAN
     Dosage: UNK
  93. METAMIZOLE [Interacting]
     Active Substance: METAMIZOLE
     Indication: Post herpetic neuralgia
     Dosage: UNK
     Route: 065
  94. ELIQUIS [Interacting]
     Active Substance: APIXABAN
     Indication: Anticoagulant therapy
     Dosage: 5 MILLIGRAM, QD
     Route: 048
  95. ELIQUIS [Interacting]
     Active Substance: APIXABAN
     Dosage: UNK
     Route: 065
  96. ELIQUIS [Interacting]
     Active Substance: APIXABAN
     Dosage: 10 MILLIGRAM, QD (5 MG, BID)
     Route: 048
  97. PREDNISONE [Interacting]
     Active Substance: PREDNISONE
     Indication: Steroid therapy
     Dosage: UNK, QD
     Route: 065
  98. PREDNISONE [Interacting]
     Active Substance: PREDNISONE
     Dosage: 2-0-0
     Route: 065
  99. PREDNISONE [Interacting]
     Active Substance: PREDNISONE
     Dosage: 5 MILLIGRAM, QD
     Route: 048
  100. PREDNISONE [Interacting]
     Active Substance: PREDNISONE
     Dosage: UNK
     Route: 065
  101. METAMIZOLE [Interacting]
     Active Substance: METAMIZOLE
     Indication: Product used for unknown indication
     Dosage: 500 MILLIGRAM, BID
     Route: 065
  102. METAMIZOLE [Interacting]
     Active Substance: METAMIZOLE
     Dosage: 500 MILLIGRAM, Q12H
     Route: 065
  103. MELOXICAM [Interacting]
     Active Substance: MELOXICAM
     Indication: Post herpetic neuralgia
     Dosage: 1 DOSAGE FORM, QW
     Route: 065
     Dates: start: 2015
  104. MELOXICAM [Interacting]
     Active Substance: MELOXICAM
     Indication: Pain
     Dosage: UNK
     Route: 065
  105. MELOXICAM [Interacting]
     Active Substance: MELOXICAM
     Dosage: 15 MILLIGRAM, QD
     Route: 048
  106. AMLODIPINE BESYLATE [Interacting]
     Active Substance: AMLODIPINE BESYLATE
     Indication: Hypertension
     Dosage: 5 MILLIGRAM, QD
     Route: 048
  107. AMLODIPINE BESYLATE [Interacting]
     Active Substance: AMLODIPINE BESYLATE
     Dosage: UNK
     Route: 065
  108. CORDARONE [Interacting]
     Active Substance: AMIODARONE HYDROCHLORIDE
     Indication: Atrial fibrillation
     Dosage: 200 MILLIGRAM, QD
     Route: 048
  109. CORDARONE [Interacting]
     Active Substance: AMIODARONE HYDROCHLORIDE
     Dosage: UNK
     Route: 065
  110. SODIUM CHONDROITIN SULFATE [Interacting]
     Active Substance: SODIUM CHONDROITIN SULFATE
     Indication: Rheumatoid arthritis
     Dosage: 800 MILLIGRAM, QD
     Route: 048
  111. SODIUM CHONDROITIN SULFATE [Interacting]
     Active Substance: SODIUM CHONDROITIN SULFATE
     Dosage: UNK
     Route: 065
  112. FOLIC ACID [Interacting]
     Active Substance: FOLIC ACID
     Indication: Product used for unknown indication
     Dosage: UNK, QD
     Route: 065
  113. FOLIC ACID [Interacting]
     Active Substance: FOLIC ACID
     Dosage: UNK
     Route: 065
  114. CALCIUM\CHOLECALCIFEROL [Interacting]
     Active Substance: CALCIUM\CHOLECALCIFEROL
     Indication: Calcium deficiency
     Dosage: UNK, QD
     Route: 065
  115. CALCIUM\CHOLECALCIFEROL [Interacting]
     Active Substance: CALCIUM\CHOLECALCIFEROL
     Dosage: UNK
     Route: 065
  116. POTASSIUM ASPARTATE [Interacting]
     Active Substance: POTASSIUM ASPARTATE
     Indication: Product used for unknown indication
     Dosage: UNK
     Route: 065
  117. ZOLPIDEM TARTRATE [Interacting]
     Active Substance: ZOLPIDEM TARTRATE
     Indication: Drug abuse
     Dosage: OVERUSED
     Route: 065
  118. ZOLPIDEM TARTRATE [Interacting]
     Active Substance: ZOLPIDEM TARTRATE
     Indication: Drug abuse
     Dosage: OVERUSED
     Route: 065
  119. OXAZEPAM [Interacting]
     Active Substance: OXAZEPAM
     Indication: Drug abuse
     Dosage: OVERUSED
     Route: 065
  120. OXAZEPAM [Interacting]
     Active Substance: OXAZEPAM
     Dosage: UNK
     Route: 048
  121. METOPROLOL SUCCINATE [Interacting]
     Active Substance: METOPROLOL SUCCINATE
     Indication: Hypertension
     Dosage: 25 MILLIGRAM, QD
     Route: 048
  122. METOPROLOL SUCCINATE [Interacting]
     Active Substance: METOPROLOL SUCCINATE
     Dosage: 25 MILLIGRAM, QD
     Route: 065
     Dates: start: 20200824
  123. MAGNESIUM ASPARTATE [Interacting]
     Active Substance: MAGNESIUM ASPARTATE
     Indication: Product used for unknown indication
     Dosage: UNK
     Route: 065
  124. NOVALGIN (METAMIZOLE SODIUM) [Suspect]
     Active Substance: METAMIZOLE SODIUM
     Indication: Hypertension
     Dosage: UNK
     Route: 065
  125. NOVALGIN (METAMIZOLE SODIUM) [Suspect]
     Active Substance: METAMIZOLE SODIUM
     Dosage: 1000 MILLIGRAM, QD (500 MG BID)
     Route: 065
  126. MAGNESIUM ASPARTATE\POTASSIUM ASPARTATE [Interacting]
     Active Substance: MAGNESIUM ASPARTATE\POTASSIUM ASPARTATE
     Indication: Encephalopathy
     Dosage: UNK UNK, QD
     Route: 048
  127. MAGNESIUM ASPARTATE\POTASSIUM ASPARTATE [Interacting]
     Active Substance: MAGNESIUM ASPARTATE\POTASSIUM ASPARTATE
     Dosage: UNK
     Route: 065
  128. METHOTREXATE SODIUM [Suspect]
     Active Substance: METHOTREXATE SODIUM
     Indication: Rheumatoid arthritis
     Dosage: 10 MILLIGRAM, QWK
     Route: 065
     Dates: start: 2010
  129. METHOTREXATE SODIUM [Suspect]
     Active Substance: METHOTREXATE SODIUM
     Dosage: UNK
     Route: 065
  130. CAPTOPRIL [Suspect]
     Active Substance: CAPTOPRIL
     Indication: Blood pressure increased
     Dosage: UNK
     Route: 065
  131. CAPTOPRIL [Suspect]
     Active Substance: CAPTOPRIL
     Indication: Hypertension
  132. FOLIC ACID [Suspect]
     Active Substance: FOLIC ACID
     Indication: Product used for unknown indication
     Dosage: UNK UNK, QD
  133. GUAIFENESIN [Suspect]
     Active Substance: GUAIFENESIN
     Indication: Hypertension
     Dosage: UNK
     Route: 042
  134. GUAIFENESIN [Suspect]
     Active Substance: GUAIFENESIN
     Dosage: UNK
  135. ALPRAZOLAM [Interacting]
     Active Substance: ALPRAZOLAM
     Indication: Product used for unknown indication
     Dosage: UNK
     Route: 065
  136. RAMIPRIL [Suspect]
     Active Substance: RAMIPRIL
     Indication: Product used for unknown indication
     Dosage: UNK
     Route: 065
  137. IBUPROFEN [Interacting]
     Active Substance: IBUPROFEN
     Indication: Pain
     Dosage: UNK
     Route: 065
  138. TRAZODONE [Suspect]
     Active Substance: TRAZODONE HYDROCHLORIDE
     Indication: Product used for unknown indication
     Dosage: UNK
  139. AMLODIPINE BESYLATE [Suspect]
     Active Substance: AMLODIPINE BESYLATE
     Dosage: 5 MG
     Route: 048
  140. AMLODIPINE BESYLATE [Suspect]
     Active Substance: AMLODIPINE BESYLATE
     Indication: Hypertension
  141. AMLODIPINE BESYLATE [Suspect]
     Active Substance: AMLODIPINE BESYLATE
     Indication: Product used for unknown indication
  142. CAPTOPRIL [Suspect]
     Active Substance: CAPTOPRIL
     Indication: Hypertension
     Dosage: UNK
     Route: 065
  143. DONEPEZIL HYDROCHLORIDE [Suspect]
     Active Substance: DONEPEZIL HYDROCHLORIDE
     Indication: Product used for unknown indication
     Dosage: UNK
     Route: 065
  144. GUAIFENESIN [Suspect]
     Active Substance: GUAIFENESIN
     Indication: Product used for unknown indication
     Dosage: UNK
     Route: 065
  145. APIXABAN [Suspect]
     Active Substance: APIXABAN
     Indication: Product used for unknown indication
     Dosage: UNK
     Route: 065
  146. MAGNESIUM ASPARTATE\POTASSIUM ASPARTATE [Suspect]
     Active Substance: MAGNESIUM ASPARTATE\POTASSIUM ASPARTATE
     Indication: Product used for unknown indication
     Dosage: UNK
     Route: 065
  147. MAGNESIUM ASPARTATE\POTASSIUM ASPARTATE [Suspect]
     Active Substance: MAGNESIUM ASPARTATE\POTASSIUM ASPARTATE
     Indication: Product used for unknown indication
     Route: 065
  148. LEVOTHYROXINE [Suspect]
     Active Substance: LEVOTHYROXINE
     Indication: Product used for unknown indication
     Dosage: UNK
     Route: 065
  149. CALCIUM\CHOLECALCIFEROL [Suspect]
     Active Substance: CALCIUM\CHOLECALCIFEROL
     Indication: Product used for unknown indication
     Dosage: UNK
     Route: 065
  150. CAPTOPRIL [Suspect]
     Active Substance: CAPTOPRIL
     Indication: Product used for unknown indication
     Dosage: UNK
     Route: 065
  151. CHONDROITIN SULFATE (BOVINE) [Suspect]
     Active Substance: CHONDROITIN SULFATE (BOVINE)
     Indication: Product used for unknown indication
     Dosage: UNK
     Route: 065
  152. MAGNESIUM ASPARTATE\POTASSIUM ASPARTATE [Suspect]
     Active Substance: MAGNESIUM ASPARTATE\POTASSIUM ASPARTATE
     Indication: Product used for unknown indication
     Dosage: UNK
     Route: 065

REACTIONS (50)
  - Delirium [Recovered/Resolved]
  - Listless [Recovering/Resolving]
  - General physical health deterioration [Recovering/Resolving]
  - Head discomfort [Recovered/Resolved]
  - Hyponatraemia [Recovered/Resolved]
  - Atrial fibrillation [Recovering/Resolving]
  - Apathy [Recovered/Resolved]
  - Oxygen saturation decreased [Recovering/Resolving]
  - Hypokalaemia [Recovered/Resolved]
  - Hypertension [Recovering/Resolving]
  - Fall [Recovered/Resolved]
  - Cognitive disorder [Recovered/Resolved]
  - Condition aggravated [Recovered/Resolved]
  - Pelvic fracture [Recovered/Resolved]
  - Fracture [Recovered/Resolved]
  - Restlessness [Recovered/Resolved]
  - Discomfort [Recovered/Resolved]
  - Incorrect dose administered [Unknown]
  - Bedridden [Recovered/Resolved]
  - Dehydration [Recovered/Resolved]
  - Loss of personal independence in daily activities [Recovered/Resolved]
  - Hypoacusis [Recovered/Resolved]
  - Encephalopathy [Recovering/Resolving]
  - Mobility decreased [Recovered/Resolved]
  - Concomitant disease aggravated [Recovering/Resolving]
  - Deafness [Recovered/Resolved]
  - Poor quality sleep [Recovered/Resolved]
  - Contusion [Recovered/Resolved]
  - Drug abuse [Unknown]
  - Intentional product misuse [Unknown]
  - Confusional state [Recovered/Resolved]
  - Urinary retention [Recovering/Resolving]
  - Vertigo [Recovering/Resolving]
  - Dizziness [Recovered/Resolved]
  - Liver function test increased [Recovered/Resolved]
  - Nausea [Recovered/Resolved]
  - Anxiety [Recovered/Resolved]
  - Drug interaction [Recovered/Resolved]
  - Overdose [Recovered/Resolved]
  - Affect lability [Recovered/Resolved]
  - Foreign body [Recovered/Resolved]
  - Product use issue [Recovered/Resolved]
  - Reduced facial expression [Recovered/Resolved]
  - Drug ineffective [Unknown]
  - Fatigue [Recovered/Resolved]
  - Injection site mass [Recovered/Resolved]
  - Sleep disorder [Recovering/Resolving]
  - Drug ineffective for unapproved indication [Unknown]
  - Prescription drug used without a prescription [Unknown]
  - Medication error [Recovered/Resolved]

NARRATIVE: CASE EVENT DATE: 20180101
